FAERS Safety Report 13224947 (Version 1)
Quarter: 2017Q1

REPORT INFORMATION
  Report Type: Spontaneous
  Country: US (occurrence: US)
  Receive Date: 20170213
  Receipt Date: 20170213
  Transmission Date: 20170428
  Serious: Yes (Life-Threatening, Hospitalization)
  Sender: FDA-Public Use
  Company Number: US-BION-005960

PATIENT
  Age: 41 Year
  Sex: Male

DRUGS (1)
  1. LOPERAMIDE HYDROCHLORIDE UNKNOWN PRODUCT [Suspect]
     Active Substance: LOPERAMIDE HYDROCHLORIDE
     Indication: PAIN
     Dosage: TAKING OVER 100 MG PER DAY (LARGE DOSES)

REACTIONS (5)
  - Incorrect dose administered [Not Recovered/Not Resolved]
  - Torsade de pointes [Unknown]
  - Self-medication [Unknown]
  - Off label use [Unknown]
  - Cardiac arrest [Unknown]
